FAERS Safety Report 10615830 (Version 3)
Quarter: 2015Q1

REPORT INFORMATION
  Report Type: Spontaneous
  Country: PT (occurrence: PT)
  Receive Date: 20141201
  Receipt Date: 20150105
  Transmission Date: 20150720
  Serious: Yes (Hospitalization)
  Sender: FDA-Public Use
  Company Number: PT-JNJFOC-20141114214

PATIENT
  Age: 15 Year
  Sex: Male

DRUGS (1)
  1. XEPLION [Suspect]
     Active Substance: PALIPERIDONE PALMITATE
     Indication: PRODUCT USED FOR UNKNOWN INDICATION
     Route: 030
     Dates: start: 20141107

REACTIONS (4)
  - Fall [Unknown]
  - Injury [Unknown]
  - Craniocerebral injury [Unknown]
  - Product use issue [Unknown]

NARRATIVE: CASE EVENT DATE: 20141116
